FAERS Safety Report 17000525 (Version 1)
Quarter: 2019Q4

REPORT INFORMATION
  Report Type: Spontaneous
  Country: NL (occurrence: NL)
  Receive Date: 20191106
  Receipt Date: 20191106
  Transmission Date: 20200122
  Serious: Yes (Hospitalization)
  Sender: FDA-Public Use
  Company Number: NL-MYLANLABS-2019M1104538

PATIENT
  Age: 79 Year
  Sex: Female
  Weight: 85 kg

DRUGS (4)
  1. DILTIAZEM. [Concomitant]
     Active Substance: DILTIAZEM
     Dosage: UNK
  2. ACETYLSALICYLZUUR [Concomitant]
     Active Substance: ASPIRIN
     Dosage: UNK
  3. ISOSORBIDEMONONITRAAT [Concomitant]
     Dosage: UNK
  4. NAPROXEN. [Suspect]
     Active Substance: NAPROXEN
     Indication: ARTHRALGIA
     Dosage: ZN 2 X 1 TABLET
     Route: 048
     Dates: start: 20190402, end: 20190404

REACTIONS (1)
  - Diverticulitis [Recovered/Resolved]

NARRATIVE: CASE EVENT DATE: 20190402
